FAERS Safety Report 18341285 (Version 1)
Quarter: 2020Q4

REPORT INFORMATION
  Report Type: Spontaneous
  Country: DE (occurrence: DE)
  Receive Date: 20201003
  Receipt Date: 20201003
  Transmission Date: 20210113
  Serious: Yes (Hospitalization)
  Sender: FDA-Public Use
  Company Number: DE-TEVA-2020-DE-1834290

PATIENT
  Age: 55 Year
  Sex: Male

DRUGS (6)
  1. URAPIDIL [Concomitant]
     Active Substance: URAPIDIL
     Dosage: 360 MILLIGRAM DAILY; 90 MG, 1-0-0-1
  2. METOPROLOL. [Concomitant]
     Active Substance: METOPROLOL
     Dosage: 190 MILLIGRAM DAILY;  1-0-1-0
  3. TORASEMID [Suspect]
     Active Substance: TORSEMIDE
     Dosage: 10 MG, DISCONTINUED AFTER ADR
     Route: 065
  4. AMLODIPIN [Concomitant]
     Active Substance: AMLODIPINE BESYLATE
     Dosage: 10 MILLIGRAM DAILY; 5 MG, 1-0-0-1
  5. MOXONIDIN [Concomitant]
     Active Substance: MOXONIDINE
     Dosage: .2 MILLIGRAM DAILY;  0-0-1-0
  6. RAMIPRIL. [Concomitant]
     Active Substance: RAMIPRIL
     Dosage: 5 MILLIGRAM DAILY; 2.5 MG, 1-0-1-0

REACTIONS (6)
  - Product administration error [Unknown]
  - Dyspnoea exertional [Unknown]
  - Weight increased [Unknown]
  - Oedema peripheral [Unknown]
  - Periorbital oedema [Unknown]
  - Pruritus [Unknown]
